FAERS Safety Report 19035500 (Version 1)
Quarter: 2021Q1

REPORT INFORMATION
  Report Type: Spontaneous
  Country: US (occurrence: US)
  Receive Date: 20210320
  Receipt Date: 20210320
  Transmission Date: 20210420
  Serious: No
  Sender: FDA-Public Use
  Company Number: US-SA-2021SA079227

PATIENT
  Age: 50 Year
  Sex: Female

DRUGS (1)
  1. LANTUS [Suspect]
     Active Substance: INSULIN GLARGINE
     Dosage: 55 IU AM AND 60 IU PM, Q12H

REACTIONS (2)
  - Inappropriate schedule of product administration [Unknown]
  - Visual impairment [Unknown]
